FAERS Safety Report 4709983-3 (Version None)
Quarter: 2005Q3

REPORT INFORMATION
  Report Type: 
  Country: None (occurrence: None)
  Receive Date: 20050708
  Receipt Date: 20050628
  Transmission Date: 20060218
  Serious: Yes (Hospitalization)
  Sender: FDA-Public Use
  Company Number: 200512211FR

PATIENT
  Age: 72 Year
  Sex: Female

DRUGS (6)
  1. LASIX [Suspect]
     Indication: ESSENTIAL HYPERTENSION
     Route: 048
     Dates: start: 20050315, end: 20050405
  2. CORDARONE [Concomitant]
     Route: 048
  3. ACTRAPID [Concomitant]
     Indication: DIABETES MELLITUS
     Route: 058
  4. INSULIN [Concomitant]
     Indication: DIABETES MELLITUS
     Route: 058
  5. CALCIDIA [Concomitant]
     Route: 048
  6. DIAFUSOR [Concomitant]
     Route: 003

REACTIONS (9)
  - CERVICAL VERTEBRAL FRACTURE [None]
  - DEHYDRATION [None]
  - FLUID OVERLOAD [None]
  - GASTROINTESTINAL HAEMORRHAGE [None]
  - POST PROCEDURAL COMPLICATION [None]
  - REFUSAL OF TREATMENT BY PATIENT [None]
  - RENAL FAILURE [None]
  - RENAL IMPAIRMENT [None]
  - URINARY TRACT INFECTION [None]
